FAERS Safety Report 8746301 (Version 2)
Quarter: 2012Q4

REPORT INFORMATION
  Report Type: Report from Study
  Country: US (occurrence: US)
  Receive Date: 20120827
  Receipt Date: 20120910
  Transmission Date: 20130627
  Serious: Yes (Hospitalization)
  Sender: FDA-Public Use
  Company Number: US-JNJFOC-20120808465

PATIENT
  Age: 5 Year
  Sex: Female
  Weight: 21 kg

DRUGS (3)
  1. INFLIXIMAB, RECOMBINANT [Suspect]
     Indication: KAWASAKI^S DISEASE
     Route: 042
     Dates: start: 20120801, end: 20120801
  2. PLACEBO [Suspect]
     Indication: KAWASAKI^S DISEASE
     Route: 042
     Dates: start: 20120801, end: 20120801
  3. IVIG [Suspect]
     Indication: KAWASAKI^S DISEASE
     Route: 042

REACTIONS (2)
  - Kawasaki^s disease [Unknown]
  - Drug ineffective [Unknown]
